FAERS Safety Report 5309671-9 (Version None)
Quarter: 2007Q2

REPORT INFORMATION
  Report Type: 
  Country: None (occurrence: None)
  Receive Date: 20070427
  Receipt Date: 20061011
  Transmission Date: 20071010
  Serious: No
  Sender: FDA-Public Use
  Company Number: US-GLAXOSMITHKLINE-A0623254A

PATIENT
  Sex: Female

DRUGS (3)
  1. DEXEDRINE [Suspect]
     Indication: ATTENTION DEFICIT/HYPERACTIVITY DISORDER
     Dosage: 5MG TWICE PER DAY
     Route: 048
  2. PROZAC [Concomitant]
  3. BUSPAR [Concomitant]

REACTIONS (7)
  - COLD SWEAT [None]
  - CONFUSIONAL STATE [None]
  - DIZZINESS [None]
  - FEELING ABNORMAL [None]
  - MENTAL IMPAIRMENT [None]
  - NAUSEA [None]
  - REACTION TO COLOURING [None]
